FAERS Safety Report 4902941-5 (Version None)
Quarter: 2006Q1

REPORT INFORMATION
  Report Type: 
  Country: None (occurrence: None)
  Receive Date: 20060207
  Receipt Date: 20060127
  Transmission Date: 20060701
  Serious: Yes (Hospitalization)
  Sender: FDA-Public Use
  Company Number: 2006UW01685

PATIENT
  Age: 78 Year
  Sex: Female

DRUGS (6)
  1. ATACAND [Suspect]
     Indication: HYPERTENSION
     Route: 048
     Dates: start: 20040801
  2. ATACAND [Suspect]
     Dosage: 16 MG IN THE AM AND 8 MG HS
     Route: 048
     Dates: start: 20050101
  3. ATACAND [Suspect]
     Route: 048
     Dates: start: 20060101
  4. NORVASC [Suspect]
     Indication: HYPERTENSION
     Dates: start: 20040101, end: 20040101
  5. NORVASC [Suspect]
     Dates: start: 20050101
  6. NORVASC [Suspect]
     Dates: end: 20060101

REACTIONS (6)
  - BLOOD PRESSURE INCREASED [None]
  - FEELING ABNORMAL [None]
  - NEOPLASM MALIGNANT [None]
  - OEDEMA PERIPHERAL [None]
  - PAIN [None]
  - PAIN IN EXTREMITY [None]
